FAERS Safety Report 21957739 (Version 4)
Quarter: 2023Q1

REPORT INFORMATION
  Report Type: Report from Study
  Country: US (occurrence: US)
  Receive Date: 20230206
  Receipt Date: 20230312
  Transmission Date: 20230417
  Serious: Yes (Hospitalization)
  Sender: FDA-Public Use
  Company Number: US-002147023-NVSC2023US020052

PATIENT
  Age: 76 Year
  Sex: Female

DRUGS (2)
  1. TREPROSTINIL [Suspect]
     Active Substance: TREPROSTINIL
     Indication: Pulmonary arterial hypertension
     Dosage: 70 NG/KG/MIN, CONT
     Route: 042
     Dates: start: 20210322
  2. TREPROSTINIL [Suspect]
     Active Substance: TREPROSTINIL
     Dosage: 70 NG/KG/MIN, CONT
     Route: 042
     Dates: start: 20210326

REACTIONS (8)
  - Hypotension [Unknown]
  - Fatigue [Unknown]
  - Dyspepsia [Unknown]
  - Gallbladder disorder [Unknown]
  - Diarrhoea [Unknown]
  - Dyspnoea [Unknown]
  - Snoring [Unknown]
  - Sleep disorder [Unknown]

NARRATIVE: CASE EVENT DATE: 20230220
